FAERS Safety Report 23258180 (Version 1)
Quarter: 2023Q4

REPORT INFORMATION
  Report Type: Spontaneous
  Country: ES (occurrence: ES)
  Receive Date: 20231204
  Receipt Date: 20231204
  Transmission Date: 20240109
  Serious: Yes (Other)
  Sender: FDA-Public Use
  Company Number: ES-PFIZER INC-202300372916

PATIENT
  Age: 68 Year
  Sex: Female

DRUGS (2)
  1. LETROZOLE [Suspect]
     Active Substance: LETROZOLE
     Indication: Product used for unknown indication
     Dosage: 2.5 MILLIGRAM, QD, (2.5 MG, DAILY)
     Route: 065
     Dates: start: 20180223
  2. PALBOCICLIB [Suspect]
     Active Substance: PALBOCICLIB
     Indication: Breast cancer metastatic
     Dosage: 125 MG, CYCLIC (3 WEEKS ON, 1 WEEK OFF)
     Route: 065
     Dates: start: 20180223

REACTIONS (4)
  - Tibia fracture [Unknown]
  - Cellulitis [Unknown]
  - Neoplasm progression [Unknown]
  - Skin ulcer [Unknown]

NARRATIVE: CASE EVENT DATE: 20191101
